FAERS Safety Report 8255699-9 (Version None)
Quarter: 2012Q2

REPORT INFORMATION
  Report Type: 
  Country: None (occurrence: None)
  Receive Date: 20120403
  Receipt Date: 20120403
  Transmission Date: 20120825
  Serious: Yes (Hospitalization)
  Sender: FDA-Public Use
  Company Number: None

PATIENT
  Age: 47 Year
  Sex: Male
  Weight: 68.038 kg

DRUGS (1)
  1. KRILL OIL [Suspect]
     Indication: VITAMIN SUPPLEMENTATION
     Dosage: 1 SOFTGEL
     Route: 048
     Dates: start: 20120227, end: 20120304

REACTIONS (1)
  - GASTROINTESTINAL INFECTION [None]
